FAERS Safety Report 14664558 (Version 1)
Quarter: 2018Q1

REPORT INFORMATION
  Report Type: Spontaneous
  Country: US (occurrence: US)
  Receive Date: 20180321
  Receipt Date: 20180321
  Transmission Date: 20180509
  Serious: No
  Sender: FDA-Public Use
  Company Number: US-PFIZER INC-2018114758

PATIENT
  Age: 71 Year
  Sex: Female
  Weight: 68 kg

DRUGS (2)
  1. PALBOCICLIB [Suspect]
     Active Substance: PALBOCICLIB
     Dosage: UNK
     Dates: start: 201801, end: 201801
  2. FULVESTRANT. [Suspect]
     Active Substance: FULVESTRANT
     Dosage: UNK
     Dates: start: 201801, end: 201801

REACTIONS (2)
  - Neoplasm progression [Unknown]
  - Swelling face [Recovered/Resolved with Sequelae]

NARRATIVE: CASE EVENT DATE: 201801
